FAERS Safety Report 10572862 (Version 1)
Quarter: 2014Q4

REPORT INFORMATION
  Report Type: Spontaneous
  Country: JP (occurrence: JP)
  Receive Date: 20141110
  Receipt Date: 20141110
  Transmission Date: 20150529
  Serious: Yes (Death)
  Sender: FDA-Public Use
  Company Number: JP-TEVA-520756ISR

PATIENT

DRUGS (2)
  1. FLUOROURACIL. [Suspect]
     Active Substance: FLUOROURACIL
     Indication: OESOPHAGEAL SQUAMOUS CELL CARCINOMA STAGE I
     Dosage: 700 MG/M2 PER DAY FOR 24 HOURS ON DAYS 1-5, DAYS 29-33
     Route: 065
  2. CISPLATIN. [Suspect]
     Active Substance: CISPLATIN
     Indication: OESOPHAGEAL SQUAMOUS CELL CARCINOMA STAGE I
     Dosage: 70 MG/M2 ON DAY 1 AND DAY 29
     Route: 065

REACTIONS (1)
  - Cardiotoxicity [Fatal]
